FAERS Safety Report 7915810-3 (Version None)
Quarter: 2011Q4

REPORT INFORMATION
  Report Type: 
  Country: None (occurrence: None)
  Receive Date: 20111115
  Receipt Date: 20111110
  Transmission Date: 20120403
  Serious: Yes (Life-Threatening, Hospitalization)
  Sender: FDA-Public Use
  Company Number: US-US-EMD SERONO, INC.-7039112

PATIENT
  Sex: Female

DRUGS (1)
  1. REBIF [Suspect]
     Indication: MULTIPLE SCLEROSIS
     Route: 058
     Dates: start: 20100917, end: 20110701

REACTIONS (5)
  - LOSS OF CONSCIOUSNESS [None]
  - DYSPHAGIA [None]
  - CHOKING [None]
  - SPEECH DISORDER [None]
  - PNEUMONIA ASPIRATION [None]
